FAERS Safety Report 7153099-6 (Version None)
Quarter: 2010Q4

REPORT INFORMATION
  Report Type: 
  Country: None (occurrence: None)
  Receive Date: 20101209
  Receipt Date: 20101209
  Transmission Date: 20110411
  Serious: No
  Sender: FDA-Public Use
  Company Number: None

PATIENT
  Sex: Female
  Weight: 53.0709 kg

DRUGS (1)
  1. DURAGESIC-100 [Suspect]
     Dosage: 100 MCG ONE Q 72 HOURS TRANSDERMAL
     Route: 062

REACTIONS (2)
  - DRUG INEFFECTIVE [None]
  - GASTROINTESTINAL DISORDER [None]
